FAERS Safety Report 24635858 (Version 1)
Quarter: 2024Q4

REPORT INFORMATION
  Report Type: Spontaneous
  Country: US (occurrence: None)
  Receive Date: 20241118
  Receipt Date: 20241118
  Transmission Date: 20250115
  Serious: Yes (Hospitalization)
  Sender: Public
  Company Number: None

PATIENT
  Sex: Female

DRUGS (1)
  1. L-GLUTAMINE [Suspect]
     Active Substance: GLUTAMINE
     Indication: Thalassaemia sickle cell
     Dosage: 3 PACKETS BID PO ?
     Route: 048
     Dates: start: 202408

REACTIONS (1)
  - Sickle cell anaemia with crisis [None]
